FAERS Safety Report 6314848-X (Version None)
Quarter: 2009Q3

REPORT INFORMATION
  Report Type: 
  Country: None (occurrence: None)
  Receive Date: 20090819
  Receipt Date: 20090816
  Transmission Date: 20100115
  Serious: Yes (Other)
  Sender: FDA-Public Use
  Company Number: US-PFIZER INC-2009214623

PATIENT
  Sex: Male

DRUGS (1)
  1. EPLERENONE [Suspect]
     Indication: HYPERTENSION
     Dosage: 50 MG, 1X/DAY

REACTIONS (3)
  - GYNAECOMASTIA [None]
  - HYPERALDOSTERONISM [None]
  - NIPPLE EXUDATE BLOODY [None]
